FAERS Safety Report 24420162 (Version 1)
Quarter: 2024Q4

REPORT INFORMATION
  Report Type: Other
  Country: US (occurrence: US)
  Receive Date: 20241010
  Receipt Date: 20241010
  Transmission Date: 20250115
  Serious: Yes (Hospitalization, Other)
  Sender: SERVIER
  Company Number: US-SERVIER-S24012531

PATIENT

DRUGS (10)
  1. ASPARLAS [Suspect]
     Active Substance: CALASPARGASE PEGOL-MKNL
     Indication: B-cell type acute leukaemia
     Dosage: 2500 IU (DAY 4 OF INDUCTION, DAYS 15-43 OF CONSOLIDATION, DAYS 4-43 OF DELAYED INTENSIFICATION, DAYS
     Route: 042
  2. CYTARABINE [Suspect]
     Active Substance: CYTARABINE
     Indication: B-cell type acute leukaemia
     Dosage: UNK
     Route: 065
  3. DAUNORUBICIN [Suspect]
     Active Substance: DAUNORUBICIN
     Indication: B-cell type acute leukaemia
     Dosage: UNK
     Route: 042
  4. MERCAPTOPURINE [Suspect]
     Active Substance: MERCAPTOPURINE
     Indication: B-cell type acute leukaemia
     Dosage: UNK
     Route: 065
  5. METHOTREXATE [Suspect]
     Active Substance: METHOTREXATE
     Indication: B-cell type acute leukaemia
     Dosage: UNK
     Route: 037
  6. METHOTREXATE [Suspect]
     Active Substance: METHOTREXATE
     Dosage: 5 G/M2, EVERY 2 WEEKS ( IN INTERIM MAINTENANCE I )
     Route: 042
  7. METHOTREXATE [Suspect]
     Active Substance: METHOTREXATE
     Dosage: 100 MG/M2 ( ESCALATING, EVERY 10 DAYS IN IM II)
     Route: 042
  8. PREDNISOLONE [Suspect]
     Active Substance: PREDNISOLONE
     Indication: B-cell type acute leukaemia
     Dosage: UNK
     Route: 048
  9. THIOGUANINE [Suspect]
     Active Substance: THIOGUANINE
     Indication: B-cell type acute leukaemia
     Dosage: UNK
     Route: 048
  10. VINCRISTINE SULFATE [Suspect]
     Active Substance: VINCRISTINE SULFATE
     Indication: B-cell type acute leukaemia
     Dosage: UNK
     Route: 042

REACTIONS (8)
  - Venoocclusive liver disease [Recovered/Resolved]
  - Staphylococcal bacteraemia [Recovered/Resolved]
  - Escherichia bacteraemia [Recovered/Resolved]
  - Pseudomonal bacteraemia [Recovered/Resolved]
  - Septic shock [Recovered/Resolved]
  - Herpes simplex viraemia [Recovered/Resolved]
  - Neutropenic colitis [Recovered/Resolved]
  - Clostridium difficile colitis [Recovered/Resolved]
